FAERS Safety Report 13660838 (Version 1)
Quarter: 2017Q2

REPORT INFORMATION
  Report Type: Spontaneous
  Country: JP (occurrence: JP)
  Receive Date: 20170616
  Receipt Date: 20170616
  Transmission Date: 20170830
  Serious: Yes (Death)
  Sender: FDA-Public Use
  Company Number: JP-MALLINCKRODT-T201702510

PATIENT
  Age: 61 Year
  Sex: Male
  Weight: 47 kg

DRUGS (20)
  1. ALOXI [Concomitant]
     Active Substance: PALONOSETRON HYDROCHLORIDE
     Dosage: 0.75 MG
     Route: 051
     Dates: start: 20151113, end: 20151113
  2. MAGNESIUM SULFATE. [Concomitant]
     Active Substance: MAGNESIUM SULFATE
     Dosage: UNK
     Route: 051
     Dates: start: 20151113, end: 20151113
  3. FENTANYL CITRATE. [Concomitant]
     Active Substance: FENTANYL CITRATE
     Indication: ANALGESIC THERAPY
     Dosage: 0.055-0.08 MG, PRN
     Route: 051
     Dates: start: 20151027
  4. MANNITOL. [Concomitant]
     Active Substance: MANNITOL
     Dosage: 1 DF
     Route: 051
     Dates: start: 20151113, end: 20151113
  5. PANVITAN [Concomitant]
     Dosage: 1000 MG
     Route: 048
     Dates: start: 20151113, end: 20151119
  6. METOCLOPRAMIDE. [Concomitant]
     Active Substance: METOCLOPRAMIDE
     Dosage: 15 MG
     Route: 048
     Dates: start: 20151116, end: 20151124
  7. ALOSENN [Concomitant]
     Active Substance: SENNA LEAF
     Dosage: 2 DF
     Route: 048
     Dates: end: 20151222
  8. NEXIUM [Concomitant]
     Active Substance: ESOMEPRAZOLE MAGNESIUM
     Dosage: 20 MG
     Route: 048
     Dates: start: 20151031, end: 20151222
  9. METHYCOBAL [Concomitant]
     Active Substance: METHYLCOBALAMIN
     Dosage: 1 MG
     Route: 051
     Dates: start: 20151112, end: 20151112
  10. CISPLATIN. [Concomitant]
     Active Substance: CISPLATIN
     Dosage: 100 MG
     Route: 051
     Dates: start: 20151113, end: 20151113
  11. METHADONE [Suspect]
     Active Substance: METHADONE HYDROCHLORIDE
     Indication: CANCER PAIN
     Dosage: 5 MG (15 MG DAILY DOSE)
     Route: 048
     Dates: start: 20151028, end: 20151112
  12. METHADONE [Suspect]
     Active Substance: METHADONE HYDROCHLORIDE
     Dosage: (25 MG DAILY DOSE)
     Route: 048
     Dates: start: 20151203, end: 20151221
  13. MAGMITT [Concomitant]
     Active Substance: MAGNESIUM OXIDE
     Dosage: 1980 MG
     Route: 048
     Dates: end: 20151222
  14. DEXART [Concomitant]
     Active Substance: DEXAMETHASONE SODIUM PHOSPHATE
     Dosage: 10 MG
     Route: 051
     Dates: start: 20151113, end: 20151113
  15. EMEND [Concomitant]
     Active Substance: APREPITANT
     Dosage: 205 MG
     Route: 048
     Dates: start: 20151113, end: 20151113
  16. DECADRON [Concomitant]
     Active Substance: DEXAMETHASONE
     Dosage: 4 MG
     Route: 048
     Dates: start: 20151218, end: 20151221
  17. METHADONE [Suspect]
     Active Substance: METHADONE HYDROCHLORIDE
     Dosage: 10 MG (20 MG DAILY DOSE)
     Route: 048
     Dates: start: 20151113, end: 20151202
  18. DEXART [Concomitant]
     Active Substance: DEXAMETHASONE SODIUM PHOSPHATE
     Dosage: 8 MG
     Route: 051
     Dates: start: 20151114, end: 20151115
  19. ALIMTA [Concomitant]
     Active Substance: PEMETREXED DISODIUM
     Dosage: 720 MG
     Route: 051
     Dates: start: 20151113, end: 20151113
  20. AVASTIN [Concomitant]
     Active Substance: BEVACIZUMAB
     Dosage: 700 MG
     Route: 051
     Dates: start: 20151113, end: 20151113

REACTIONS (1)
  - Pleural mesothelioma [Fatal]

NARRATIVE: CASE EVENT DATE: 20151228
